FAERS Safety Report 10163706 (Version 2)
Quarter: 2014Q2

REPORT INFORMATION
  Report Type: Report from Study
  Country: DE (occurrence: NL)
  Receive Date: 20140509
  Receipt Date: 20140527
  Transmission Date: 20141212
  Serious: Yes (Death, Life-Threatening, Hospitalization)
  Sender: FDA-Public Use
  Company Number: DE-ACTELION-A-US2011-57841

PATIENT
  Age: 52 Year
  Sex: Male

DRUGS (3)
  1. VENTAVIS [Suspect]
     Indication: PULMONARY ARTERIAL HYPERTENSION
     Dosage: UNK, 6 AMPOULES DAILY
     Route: 055
     Dates: start: 20111018, end: 201111
  2. VENTAVIS [Suspect]
     Dosage: 6 AMPOULES DAILY
     Route: 055
     Dates: start: 201111, end: 2012
  3. VENTAVIS [Suspect]
     Dosage: 5 AMPOULES DAILY
     Route: 055
     Dates: start: 2012, end: 20121220

REACTIONS (14)
  - Pulmonary arterial hypertension [Fatal]
  - Cardiac failure [Unknown]
  - Brain injury [Unknown]
  - Resuscitation [Unknown]
  - Aphagia [Unknown]
  - Weight decreased [Unknown]
  - Pulmonary congestion [Unknown]
  - Depression [Unknown]
  - Aggression [Unknown]
  - Gastric disorder [Unknown]
  - Unevaluable event [Unknown]
  - General physical health deterioration [Unknown]
  - Inappropriate schedule of drug administration [Unknown]
  - Balance disorder [Unknown]
